FAERS Safety Report 6192025-3 (Version None)
Quarter: 2009Q2

REPORT INFORMATION
  Report Type: 
  Country: None (occurrence: None)
  Receive Date: 20090515
  Receipt Date: 20090506
  Transmission Date: 20091009
  Serious: Yes (Other)
  Sender: FDA-Public Use
  Company Number: US-BAYER-200911441BCC

PATIENT
  Sex: Female
  Weight: 70 kg

DRUGS (6)
  1. ALEVE (CAPLET) [Suspect]
     Indication: ARTHRITIS
     Dosage: TOTAL DAILY DOSE: 1.98 G  UNIT DOSE: 220 MG
     Route: 048
  2. GLUCOPHAGE [Concomitant]
  3. MICRONASE [Concomitant]
  4. DILTIAZEM [Concomitant]
  5. LORAZEPAM [Concomitant]
  6. ACTOS [Concomitant]

REACTIONS (1)
  - NEOPLASM MALIGNANT [None]
